FAERS Safety Report 11858270 (Version 2)
Quarter: 2016Q1

REPORT INFORMATION
  Report Type: Spontaneous
  Country: FR (occurrence: FR)
  Receive Date: 20151222
  Receipt Date: 20160105
  Transmission Date: 20160526
  Serious: Yes (Other)
  Sender: FDA-Public Use
  Company Number: FR-TEVA-619976ISR

PATIENT
  Age: 71 Year
  Sex: Female

DRUGS (4)
  1. AMOXICILLINE TEVA 500 MG [Suspect]
     Active Substance: AMOXICILLIN
     Dosage: 1 GRAM DAILY;
     Route: 048
     Dates: start: 20151113, end: 20151113
  2. PREDNISONE BIOGARAN 20 MG [Suspect]
     Active Substance: PREDNISONE
     Dosage: 40 MILLIGRAM DAILY;
     Route: 048
     Dates: start: 20151113, end: 20151113
  3. TEMERIT [Concomitant]
     Active Substance: NEBIVOLOL
  4. INEXIUM [Concomitant]
     Active Substance: ESOMEPRAZOLE

REACTIONS (9)
  - Pulmonary oedema [Recovering/Resolving]
  - Rash pruritic [Recovered/Resolved]
  - Oedema peripheral [Recovered/Resolved]
  - Fall [Unknown]
  - Anaphylactic reaction [Recovered/Resolved]
  - Loss of consciousness [Recovered/Resolved]
  - Paraesthesia [Recovered/Resolved]
  - Pneumothorax [Recovering/Resolving]
  - Malaise [Unknown]

NARRATIVE: CASE EVENT DATE: 20151113
